FAERS Safety Report 24768409 (Version 1)
Quarter: 2024Q4

REPORT INFORMATION
  Report Type: Spontaneous
  Country: JP (occurrence: JP)
  Receive Date: 20241223
  Receipt Date: 20241223
  Transmission Date: 20250115
  Serious: Yes (Death, Hospitalization, Other)
  Sender: GLAND PHARMA LTD
  Company Number: JP-GLANDPHARMA-JP-2024GLNLIT01293

PATIENT
  Age: 72 Year
  Sex: Male

DRUGS (7)
  1. GEMCITABINE [Suspect]
     Active Substance: GEMCITABINE
     Indication: Cholangiocarcinoma
     Dosage: SEVEN CYCLES
     Route: 065
  2. GEMCITABINE [Suspect]
     Active Substance: GEMCITABINE
     Dosage: TWO CYCLES
     Route: 065
  3. TEGAFUR [Suspect]
     Active Substance: TEGAFUR
     Indication: Cholangiocarcinoma
     Dosage: TWO CYCLES
     Route: 065
  4. GIMERACIL [Suspect]
     Active Substance: GIMERACIL
     Indication: Cholangiocarcinoma
     Dosage: TWO CYCLES
     Route: 065
  5. OTERACIL [Suspect]
     Active Substance: OTERACIL
     Indication: Cholangiocarcinoma
     Dosage: TWO CYCLES
     Route: 065
  6. CISPLATIN [Concomitant]
     Active Substance: CISPLATIN
     Indication: Cholangiocarcinoma
     Dosage: SEVEN CYCLES
     Route: 065
  7. PEMBROLIZUMAB [Concomitant]
     Active Substance: PEMBROLIZUMAB
     Indication: Cholangiocarcinoma
     Route: 065

REACTIONS (7)
  - Sepsis [Fatal]
  - Cholangitis infective [Unknown]
  - Small intestinal haemorrhage [Unknown]
  - Acute respiratory distress syndrome [Fatal]
  - Decreased appetite [Unknown]
  - Fatigue [Unknown]
  - Drug ineffective for unapproved indication [Unknown]
